FAERS Safety Report 6301772-1 (Version None)
Quarter: 2009Q3

REPORT INFORMATION
  Report Type: 
  Country: None (occurrence: None)
  Receive Date: 20090807
  Receipt Date: 20090803
  Transmission Date: 20100115
  Serious: Yes (Hospitalization)
  Sender: FDA-Public Use
  Company Number: US-MERCK-0908USA00267

PATIENT
  Sex: Female

DRUGS (7)
  1. VYTORIN [Suspect]
     Indication: BLOOD CHOLESTEROL INCREASED
     Route: 048
     Dates: start: 20061024, end: 20090727
  2. ASPIRIN [Concomitant]
     Route: 065
  3. NORVASC [Concomitant]
     Route: 065
  4. FUROSEMIDE [Concomitant]
     Route: 065
  5. ATENOLOL [Concomitant]
     Route: 065
  6. ISOSORBIDE [Concomitant]
     Route: 065
  7. MULTIVITAMIN [Concomitant]
     Route: 065

REACTIONS (7)
  - ABASIA [None]
  - ADVERSE DRUG REACTION [None]
  - COGNITIVE DISORDER [None]
  - MUSCLE DISORDER [None]
  - MYALGIA [None]
  - NERVE COMPRESSION [None]
  - VISUAL IMPAIRMENT [None]
